FAERS Safety Report 16641959 (Version 3)
Quarter: 2019Q3

REPORT INFORMATION
  Report Type: Spontaneous
  Country: US (occurrence: US)
  Receive Date: 20190729
  Receipt Date: 20190826
  Transmission Date: 20191004
  Serious: Yes (Hospitalization, Other)
  Sender: FDA-Public Use
  Company Number: US-PFIZER INC-2019320342

PATIENT
  Age: 62 Year
  Sex: Female
  Weight: 64.86 kg

DRUGS (2)
  1. LYRICA [Suspect]
     Active Substance: PREGABALIN
     Indication: PAIN
     Dosage: 100 MG, UNK
  2. LYRICA [Suspect]
     Active Substance: PREGABALIN
     Indication: FIBROMYALGIA
     Dosage: 200 MG, TWO TIMES A DAY
     Route: 048

REACTIONS (8)
  - Stress [Unknown]
  - Muscle spasms [Unknown]
  - Mental impairment [Unknown]
  - Bronchitis [Unknown]
  - Transient ischaemic attack [Recovered/Resolved with Sequelae]
  - Dizziness [Unknown]
  - Tremor [Unknown]
  - Gait disturbance [Unknown]

NARRATIVE: CASE EVENT DATE: 20190712
